FAERS Safety Report 22808884 (Version 3)
Quarter: 2023Q4

REPORT INFORMATION
  Report Type: Other
  Country: GB (occurrence: None)
  Receive Date: 20230810
  Receipt Date: 20231221
  Transmission Date: 20240110
  Serious: Yes (Hospitalization)
  Sender: FDA-Public Use
  Company Number: GB-ROCHE-3402969

PATIENT
  Sex: Male

DRUGS (1)
  1. TOCILIZUMAB [Suspect]
     Active Substance: TOCILIZUMAB
     Indication: Product used for unknown indication
     Route: 058

REACTIONS (2)
  - Arthropathy [Recovering/Resolving]
  - Spinal disorder [Unknown]
